FAERS Safety Report 4329624-7 (Version None)
Quarter: 2004Q1

REPORT INFORMATION
  Report Type: 
  Country: None (occurrence: None)
  Receive Date: 20040329
  Receipt Date: 20040213
  Transmission Date: 20041129
  Serious: No
  Sender: FDA-Public Use
  Company Number: 04P-163-0250383-00

PATIENT
  Age: 58 Year
  Sex: Male
  Weight: 79.3795 kg

DRUGS (6)
  1. HUMIRA [Suspect]
     Indication: RHEUMATOID ARTHRITIS
     Dosage: 40 MG, 1 IN 2 WK, SUBCUTANEOUS
     Route: 058
     Dates: start: 20040101
  2. CELECOXIB [Concomitant]
  3. PREDNISONE [Concomitant]
  4. WATER PILL [Concomitant]
  5. PAIN PILL [Concomitant]
  6. MULTIVITAMIN [Concomitant]

REACTIONS (3)
  - ASTHENIA [None]
  - HYPOAESTHESIA [None]
  - RASH [None]
